FAERS Safety Report 14426979 (Version 1)
Quarter: 2018Q1

REPORT INFORMATION
  Report Type: Spontaneous
  Country: BR (occurrence: BR)
  Receive Date: 20180123
  Receipt Date: 20180123
  Transmission Date: 20180509
  Serious: Yes (Other)
  Sender: FDA-Public Use
  Company Number: PHHY2018BR007707

PATIENT
  Sex: Female
  Weight: 79 kg

DRUGS (5)
  1. PRADAX [Concomitant]
     Active Substance: DABIGATRAN ETEXILATE MESYLATE
     Indication: PRODUCT USED FOR UNKNOWN INDICATION
     Dosage: UNK
     Route: 065
  2. OLCADIL [Suspect]
     Active Substance: CLOXAZOLAM
     Indication: ANXIETY
  3. LABIRIN [Concomitant]
     Active Substance: BETAHISTINE
     Indication: PRODUCT USED FOR UNKNOWN INDICATION
     Dosage: UNK
     Route: 065
  4. EXFORGE HCT [Suspect]
     Active Substance: AMLODIPINE BESYLATE\HYDROCHLOROTHIAZIDE\VALSARTAN
     Indication: HYPERTENSION
     Dosage: 1 DF, QD
     Route: 048
     Dates: start: 2013
  5. OLCADIL [Suspect]
     Active Substance: CLOXAZOLAM
     Indication: AFFECTIVE DISORDER
     Dosage: 1 DF, QD
     Route: 048

REACTIONS (10)
  - Arrhythmia [Recovering/Resolving]
  - Anxiety [Unknown]
  - Wrong technique in product usage process [Unknown]
  - Hypertension [Recovering/Resolving]
  - Cardiac fibrillation [Recovering/Resolving]
  - Endometrial cancer [Recovered/Resolved]
  - Heart rate increased [Unknown]
  - Dizziness [Unknown]
  - Alopecia [Recovering/Resolving]
  - Somnolence [Recovering/Resolving]

NARRATIVE: CASE EVENT DATE: 2015
